FAERS Safety Report 8156328-5 (Version None)
Quarter: 2012Q1

REPORT INFORMATION
  Report Type: 
  Country: None (occurrence: None)
  Receive Date: 20120222
  Receipt Date: 20110812
  Transmission Date: 20120608
  Serious: No
  Sender: FDA-Public Use
  Company Number: US-BRISTOL-MYERS SQUIBB COMPANY-15968720

PATIENT
  Sex: Female

DRUGS (1)
  1. KENALOG [Suspect]
     Dates: start: 20110801

REACTIONS (5)
  - ANXIETY [None]
  - NAUSEA [None]
  - PALPITATIONS [None]
  - HYPERHIDROSIS [None]
  - HEADACHE [None]
